FAERS Safety Report 9708410 (Version 1)
Quarter: 2013Q4

REPORT INFORMATION
  Report Type: Spontaneous
  Country: US (occurrence: None)
  Receive Date: 20131121
  Receipt Date: 20131121
  Transmission Date: 20140711
  Serious: Yes (Hospitalization)
  Sender: FDA-Public Use
  Company Number: IPC201311-000467

PATIENT
  Age: 31 Year
  Sex: Male

DRUGS (2)
  1. METFORMIN HYDROCHLORIDE [Suspect]
  2. ATRIPLA (EMTRICITABINE, TENOFOVIR, EFAVIRENZ) (EMTRICITABINE, TENOFOVIR, EFAVIRENZ) [Concomitant]

REACTIONS (5)
  - Hypoglycaemia [None]
  - Lactic acidosis [None]
  - Renal impairment [None]
  - Overdose [None]
  - Suicide attempt [None]
